FAERS Safety Report 8499149-6 (Version None)
Quarter: 2012Q3

REPORT INFORMATION
  Report Type: 
  Country: None (occurrence: None)
  Receive Date: 20120710
  Receipt Date: 20120628
  Transmission Date: 20120928
  Serious: Yes (Hospitalization)
  Sender: FDA-Public Use
  Company Number: JP-VERTEX PHARMACEUTICALS INC.-AE-2012-009357

PATIENT
  Age: 61 Year
  Sex: Male

DRUGS (9)
  1. TELAVIC (TELAPREVIR) [Suspect]
     Indication: HEPATITIS C
     Route: 048
     Dates: start: 20120613, end: 20120619
  2. REBETOL [Concomitant]
     Indication: HEPATITIS C
     Route: 048
     Dates: start: 20120613, end: 20120619
  3. LOXONIN [Concomitant]
     Route: 048
     Dates: start: 20120613, end: 20120619
  4. ACTOS [Concomitant]
     Route: 048
  5. PEG-INTRON [Concomitant]
     Indication: HEPATITIS C
     Route: 058
     Dates: start: 20120613, end: 20120619
  6. ENALAPRIL MALEATE [Concomitant]
     Route: 048
  7. AMARYL [Concomitant]
     Route: 048
  8. ADALAT CC [Concomitant]
     Route: 048
  9. OLOPATADINE HCL [Concomitant]
     Route: 048
     Dates: start: 20120613, end: 20120619

REACTIONS (1)
  - SOMNOLENCE [None]
